FAERS Safety Report 9271618 (Version 1)
Quarter: 2013Q2

REPORT INFORMATION
  Report Type: Spontaneous
  Country: GB (occurrence: GB)
  Receive Date: 20130506
  Receipt Date: 20130506
  Transmission Date: 20140414
  Serious: Yes (Hospitalization, Other)
  Sender: FDA-Public Use
  Company Number: GB-PFIZER INC-2013138224

PATIENT
  Age: 17 Year
  Sex: Male

DRUGS (11)
  1. PIPERACILLIN/TAZOBACTAM [Suspect]
     Dosage: 4G/10.5G AT DINNER TIME
     Route: 042
     Dates: start: 20130405, end: 20130409
  2. AZITHROMYCIN [Concomitant]
  3. CREON [Concomitant]
  4. VITAMIN A [Concomitant]
  5. VITAMIN D [Concomitant]
  6. VITAMIN E [Concomitant]
  7. VENTOLIN [Concomitant]
     Route: 055
  8. MOVICOL [Concomitant]
  9. OMEPRAZOLE [Concomitant]
  10. URSODEOXYCHOLIC ACID [Concomitant]
  11. VITAMIN K [Concomitant]

REACTIONS (8)
  - Vomiting [Recovering/Resolving]
  - Headache [Recovering/Resolving]
  - Nausea [Recovering/Resolving]
  - Rash [Recovering/Resolving]
  - Hypoaesthesia oral [Recovering/Resolving]
  - Hypoaesthesia [Recovering/Resolving]
  - Malaise [Recovering/Resolving]
  - Body temperature increased [Recovering/Resolving]
